FAERS Safety Report 4279592-1 (Version None)
Quarter: 2004Q1

REPORT INFORMATION
  Report Type: 
  Country: None (occurrence: None)
  Receive Date: 20040123
  Receipt Date: 20040112
  Transmission Date: 20041129
  Serious: Yes (Hospitalization)
  Sender: FDA-Public Use
  Company Number: HQWYE237012JAN04

PATIENT
  Age: 64 Year
  Sex: Male

DRUGS (2)
  1. ADVIL [Suspect]
     Dosage: ORAL
     Route: 048
  2. PROZAC [Suspect]
     Dosage: ORAL
     Route: 048
     Dates: start: 19970101

REACTIONS (2)
  - POLYNEUROPATHY [None]
  - SCIATICA [None]
